FAERS Safety Report 8512636-7 (Version None)
Quarter: 2012Q3

REPORT INFORMATION
  Report Type: 
  Country: None (occurrence: None)
  Receive Date: 20120716
  Receipt Date: 20120706
  Transmission Date: 20120928
  Serious: Yes (Hospitalization, Other)
  Sender: FDA-Public Use
  Company Number: FR-VERTEX PHARMACEUTICALS INC.-AE-2011-000318

PATIENT
  Sex: Female
  Weight: 69 kg

DRUGS (8)
  1. VX-950 [Suspect]
     Indication: HEPATITIS C
     Route: 048
     Dates: start: 20110314, end: 20110601
  2. MODURETIC 5-50 [Concomitant]
     Indication: HYPERTENSION
  3. COPEGUS [Concomitant]
     Indication: HEPATITIS C
     Route: 048
     Dates: start: 20110314
  4. COPEGUS [Concomitant]
     Route: 048
  5. VERAPAMIL [Concomitant]
     Indication: HYPERTENSION
  6. PROGESTERONE [Concomitant]
     Indication: MENOPAUSE
  7. PEGASYS [Concomitant]
     Indication: HEPATITIS C
     Route: 058
     Dates: start: 20110314
  8. COPEGUS [Concomitant]
     Route: 048

REACTIONS (7)
  - RENAL FAILURE ACUTE [None]
  - HYPEROSMOLAR STATE [None]
  - PRURITUS [None]
  - OEDEMA PERIPHERAL [None]
  - THROMBOCYTOPENIA [None]
  - HYPOKALAEMIA [None]
  - ANAEMIA [None]
